FAERS Safety Report 7434353-7 (Version None)
Quarter: 2011Q2

REPORT INFORMATION
  Report Type: 
  Country: None (occurrence: None)
  Receive Date: 20110425
  Receipt Date: 20110420
  Transmission Date: 20111010
  Serious: No
  Sender: FDA-Public Use
  Company Number: US-PFIZER INC-2011086757

PATIENT
  Sex: Male
  Weight: 74.83 kg

DRUGS (2)
  1. IRON [Concomitant]
     Indication: MINERAL SUPPLEMENTATION
     Dosage: UNK
  2. ADVIL LIQUI-GELS [Suspect]
     Indication: HEADACHE
     Dosage: UNK

REACTIONS (1)
  - THROAT IRRITATION [None]
